FAERS Safety Report 5596205-7 (Version None)
Quarter: 2007Q4

REPORT INFORMATION
  Report Type: 
  Country: None (occurrence: None)
  Receive Date: 20071218
  Receipt Date: 20060810
  Transmission Date: 20080405
  Serious: Yes (Hospitalization, Other)
  Sender: FDA-Public Use
  Company Number: 2006099731

PATIENT
  Age: 60 Year
  Sex: Female

DRUGS (1)
  1. BEXTRA [Suspect]
     Indication: PAIN
     Dosage: 40 MG (20 MG,2 IN 1 D)
     Dates: start: 20020403, end: 20040730

REACTIONS (1)
  - MYOCARDIAL INFARCTION [None]
